FAERS Safety Report 9059666 (Version 1)
Quarter: 2013Q1

REPORT INFORMATION
  Report Type: Spontaneous
  Country: BR (occurrence: BR)
  Receive Date: 20130212
  Receipt Date: 20130212
  Transmission Date: 20140127
  Serious: Yes (Other)
  Sender: FDA-Public Use
  Company Number: BR-AMGEN-BRACT2011022066

PATIENT
  Age: 50 Year
  Sex: Female
  Weight: 80 kg

DRUGS (13)
  1. ENBREL [Suspect]
     Indication: RHEUMATOID ARTHRITIS
     Dosage: 50 MG, 1X/WEEK
     Route: 058
     Dates: start: 201009, end: 201210
  2. ENBREL [Suspect]
     Dosage: UNK
     Dates: start: 201009
  3. DICLOFENAC [Concomitant]
     Indication: PAIN
     Dosage: 50 MG, AS NEEDED
  4. TRAMAL [Concomitant]
     Indication: PAIN
     Dosage: UNK, AS NEEDED
  5. DIPYRONE [Concomitant]
     Indication: PAIN
     Dosage: UNK
  6. TIMOLOL [Concomitant]
     Indication: GLAUCOMA
     Dosage: UNK
  7. GENTEAL                            /00445101/ [Concomitant]
     Indication: PRODUCT USED FOR UNKNOWN INDICATION
     Dosage: UNK
  8. CAPTOPRIL [Concomitant]
     Indication: HYPERTENSION
     Dosage: UNK
     Dates: end: 201104
  9. TYLEX                              /00547501/ [Concomitant]
     Indication: PRODUCT USED FOR UNKNOWN INDICATION
     Dosage: UNK
  10. OMEPRAZOL                          /00661201/ [Concomitant]
     Indication: PRODUCT USED FOR UNKNOWN INDICATION
     Dosage: UNK
  11. PROFENID [Concomitant]
     Indication: PAIN
     Dosage: UNK, AS NEEDED
  12. LOSARTAN [Concomitant]
     Indication: BLOOD PRESSURE INCREASED
     Dosage: UNK, 1X/DAY
  13. ATENOLOL [Concomitant]
     Indication: ARRHYTHMIA
     Dosage: UNK, 1X/DAY

REACTIONS (10)
  - Wrong technique in drug usage process [Unknown]
  - Glaucoma [Not Recovered/Not Resolved]
  - Hepatic steatosis [Not Recovered/Not Resolved]
  - Pain [Unknown]
  - Drug ineffective [Unknown]
  - Urinary tract infection [Unknown]
  - Injection site erythema [Unknown]
  - Injection site pruritus [Not Recovered/Not Resolved]
  - Injection site pain [Unknown]
  - Injection site swelling [Not Recovered/Not Resolved]
